FAERS Safety Report 9348142 (Version 2)
Quarter: 2013Q2

REPORT INFORMATION
  Report Type: Spontaneous
  Country: US (occurrence: US)
  Receive Date: 20130614
  Receipt Date: 20130628
  Transmission Date: 20140414
  Serious: Yes (Other)
  Sender: FDA-Public Use
  Company Number: US-JNJFOC-20130602436

PATIENT
  Sex: Male

DRUGS (3)
  1. ULTRAM [Suspect]
     Indication: PAIN
     Dosage: OVER THE PAST 20 YEARS
     Route: 048
  2. ULTRAM [Suspect]
     Indication: PAIN
     Dosage: FOR ABOUT A YEAR
     Route: 048
  3. ULTRAM [Suspect]
     Indication: PAIN
     Dosage: ONE OR TWO 50 MG TABLET DAILY
     Route: 048

REACTIONS (3)
  - Sciatica [Recovering/Resolving]
  - Adverse event [Unknown]
  - Drug ineffective [Unknown]
